FAERS Safety Report 6599683-X (Version None)
Quarter: 2010Q1

REPORT INFORMATION
  Report Type: 
  Country: None (occurrence: None)
  Receive Date: 20100224
  Receipt Date: 20100217
  Transmission Date: 20100710
  Serious: Yes (Death, Other)
  Sender: FDA-Public Use
  Company Number: US-ELI_LILLY_AND_COMPANY-US201002005179

PATIENT
  Sex: Female

DRUGS (1)
  1. ALIMTA [Suspect]
     Indication: BREAST CANCER

REACTIONS (4)
  - MALIGNANT NEOPLASM PROGRESSION [None]
  - OFF LABEL USE [None]
  - RASH [None]
  - RENAL FAILURE [None]
